FAERS Safety Report 8803710 (Version 1)
Quarter: 2012Q4

REPORT INFORMATION
  Report Type: 
  Country: PT (occurrence: PT)
  Receive Date: 20120924
  Receipt Date: 20120924
  Transmission Date: 20130627
  Serious: Yes (Other)
  Sender: FDA-Public Use
  Company Number: PT-JNJFOC-20120906946

PATIENT
  Sex: Male

DRUGS (1)
  1. REMICADE [Suspect]
     Indication: PITYRIASIS RUBRA PILARIS
     Route: 042

REACTIONS (3)
  - Lymphocytosis [Unknown]
  - Leukocytosis [Unknown]
  - Off label use [Unknown]
